FAERS Safety Report 12391236 (Version 1)
Quarter: 2016Q2

REPORT INFORMATION
  Report Type: Spontaneous
  Country: US (occurrence: US)
  Receive Date: 20160520
  Receipt Date: 20160520
  Transmission Date: 20160815
  Serious: No
  Sender: FDA-Public Use
  Company Number: US-BRECKENRIDGE PHARMACEUTICAL, INC.-1052580

PATIENT
  Age: 57 Year
  Sex: Female
  Weight: 81.82 kg

DRUGS (1)
  1. ESTRADIOL AND NORETHINDRONE ACETATE [Suspect]
     Active Substance: ESTRADIOL\NORETHINDRONE ACETATE
     Indication: MENOPAUSAL SYMPTOMS
     Route: 048
     Dates: start: 20160512, end: 20160517

REACTIONS (3)
  - Hot flush [Recovered/Resolved]
  - Palpitations [Recovered/Resolved]
  - Cardiovascular symptom [Recovered/Resolved]
